FAERS Safety Report 9047185 (Version 1)
Quarter: 2013Q1

REPORT INFORMATION
  Report Type: Report from Study
  Country: US (occurrence: US)
  Receive Date: 20130130
  Receipt Date: 20130130
  Transmission Date: 20140127
  Serious: No
  Sender: FDA-Public Use
  Company Number: US-ABBOTT-12P-163-0977848-00

PATIENT
  Age: 70 Year
  Sex: Female

DRUGS (6)
  1. HUMIRA [Suspect]
     Indication: PSORIASIS
  2. METOPROLOL ER [Concomitant]
     Indication: HYPERTENSION
  3. TRIAMTERENE/HCTZ [Concomitant]
     Indication: SWELLING
     Dosage: 37.7/25 MG
  4. MIRALAX [Concomitant]
     Indication: CONSTIPATION
     Dosage: DAILY
  5. VICODIN [Concomitant]
     Indication: PAIN
     Dosage: 5/500
  6. ZOLOFT [Concomitant]
     Indication: DEPRESSION
     Dosage: DAILY

REACTIONS (2)
  - Injection site pain [Recovered/Resolved]
  - Drug dose omission [Recovered/Resolved]
